FAERS Safety Report 6316346-6 (Version None)
Quarter: 2009Q3

REPORT INFORMATION
  Report Type: 
  Country: None (occurrence: None)
  Receive Date: 20090820
  Receipt Date: 20090728
  Transmission Date: 20100115
  Serious: Yes (Hospitalization)
  Sender: FDA-Public Use
  Company Number: A0802595A

PATIENT
  Age: 77 Year
  Sex: Male

DRUGS (11)
  1. MELPHALAN HYDROCHLORIDE [Suspect]
     Indication: DRUG USE FOR UNKNOWN INDICATION
     Dates: start: 20080606
  2. THALIDOMIDE [Suspect]
     Indication: MULTIPLE MYELOMA
     Dosage: 50MG PER DAY
     Route: 048
     Dates: start: 20080609, end: 20080619
  3. PREDNISONE [Concomitant]
  4. COUMADIN [Concomitant]
  5. PAMIDRONATE DISODIUM [Concomitant]
  6. TYLENOL (CAPLET) [Concomitant]
     Indication: BACK PAIN
  7. IBUPROFEN [Concomitant]
     Indication: BACK PAIN
  8. METOPROLOL [Concomitant]
     Dosage: 50MG TWICE PER DAY
  9. HYDROCHLOROTHIAZIDE [Concomitant]
     Dosage: 12.5MG PER DAY
  10. SPIRIVA [Concomitant]
  11. VALIUM [Concomitant]

REACTIONS (16)
  - CANDIDIASIS [None]
  - CHILLS [None]
  - COUGH [None]
  - DYSPHAGIA [None]
  - HEADACHE [None]
  - NAUSEA [None]
  - ODYNOPHAGIA [None]
  - OROPHARYNGEAL PAIN [None]
  - PAIN [None]
  - PANCYTOPENIA [None]
  - PHARYNGITIS [None]
  - PNEUMOCOCCAL BACTERAEMIA [None]
  - POOR QUALITY SLEEP [None]
  - PYREXIA [None]
  - SENSATION OF FOREIGN BODY [None]
  - TREMOR [None]
